FAERS Safety Report 16772154 (Version 1)
Quarter: 2019Q3

REPORT INFORMATION
  Report Type: Report from Study
  Country: US (occurrence: US)
  Receive Date: 20190904
  Receipt Date: 20190904
  Transmission Date: 20191005
  Serious: No
  Sender: FDA-Public Use
  Company Number: US-EMD SERONO-9095775

PATIENT
  Age: 30 Year
  Sex: Male

DRUGS (1)
  1. MAVENCLAD [Suspect]
     Active Substance: CLADRIBINE
     Indication: MULTIPLE SCLEROSIS
     Dosage: IN FIRST WEEK THERAPY, THE PATIENT WAS PRESCRIBED TO TAKE TWO TABLETS (EACH OF 10 MG) ON DAYS 1 TO 5
     Route: 048
     Dates: start: 20190529

REACTIONS (1)
  - Fatigue [Unknown]

NARRATIVE: CASE EVENT DATE: 201905
